FAERS Safety Report 6291233-0 (Version None)
Quarter: 2009Q3

REPORT INFORMATION
  Report Type: 
  Country: None (occurrence: None)
  Receive Date: 20090729
  Receipt Date: 20090729
  Transmission Date: 20100115
  Serious: Yes (Life-Threatening, Other)
  Sender: FDA-Public Use
  Company Number: None

PATIENT
  Age: 58 Year
  Sex: Female
  Weight: 108.4097 kg

DRUGS (2)
  1. AVANDARYL [Suspect]
     Indication: TYPE 2 DIABETES MELLITUS
     Dosage: TAKE ONE TABLET ONCE A DAY PO
     Route: 048
     Dates: start: 20050401, end: 20090725
  2. AVANDARYL [Suspect]

REACTIONS (2)
  - CARDIAC FAILURE [None]
  - CORONARY ARTERY OCCLUSION [None]
